FAERS Safety Report 8916982 (Version 1)
Quarter: 2012Q4

REPORT INFORMATION
  Report Type: 
  Country: JP (occurrence: JP)
  Receive Date: 20121120
  Receipt Date: 20121120
  Transmission Date: 20130627
  Serious: Yes (Hospitalization, Other)
  Sender: FDA-Public Use
  Company Number: JP-PFIZER INC-2012285872

PATIENT
  Age: 47 Year
  Sex: Female

DRUGS (6)
  1. IMATINIB MESILATE [Suspect]
     Indication: CHRONIC MYELOGENOUS LEUKAEMIA
     Dosage: 400 mg, 1x/day
  2. IMATINIB MESILATE [Suspect]
     Indication: ATTEMPTED SUICIDE
     Dosage: 200 mg, 1x/day
  3. IMATINIB MESILATE [Suspect]
     Dosage: 2000 mg, single
  4. IMATINIB MESILATE [Suspect]
     Dosage: 200 mg, 1x/day
  5. TRIAZOLAM [Suspect]
     Indication: ATTEMPTED SUICIDE
     Dosage: 3.5 mg, single
  6. BROTIZOLAM [Suspect]
     Indication: ATTEMPTED SUICIDE
     Dosage: 12.5 mg, single

REACTIONS (5)
  - Overdose [Recovered/Resolved]
  - Suicide attempt [Recovered/Resolved]
  - Coma [Recovered/Resolved]
  - Blood creatine phosphokinase increased [Recovered/Resolved]
  - Muscle spasms [Recovered/Resolved]
